FAERS Safety Report 16893958 (Version 2)
Quarter: 2020Q1

REPORT INFORMATION
  Report Type: Report from Study
  Country: IT (occurrence: IT)
  Receive Date: 20191008
  Receipt Date: 20200117
  Transmission Date: 20200409
  Serious: Yes (Hospitalization, Other)
  Sender: FDA-Public Use
  Company Number: IT-BAYER-2019-179989

PATIENT
  Age: 65 Year
  Sex: Female

DRUGS (2)
  1. ULTRAVIST [Suspect]
     Active Substance: IOPROMIDE
     Indication: X-RAY WITH CONTRAST
     Dosage: 1 DF, QD
     Route: 042
     Dates: start: 20190508, end: 20190508
  2. AMPLITAL [AMPICILLIN SODIUM] [Concomitant]
     Dosage: 1 G

REACTIONS (5)
  - Oedema [Recovering/Resolving]
  - Pain in jaw [Recovering/Resolving]
  - Rash [Recovering/Resolving]
  - Contrast media reaction [Recovering/Resolving]
  - Lip oedema [Recovering/Resolving]

NARRATIVE: CASE EVENT DATE: 20190508
